FAERS Safety Report 9541307 (Version 3)
Quarter: 2013Q4

REPORT INFORMATION
  Report Type: Spontaneous
  Country: DE (occurrence: DE)
  Receive Date: 20130923
  Receipt Date: 20131021
  Transmission Date: 20140711
  Serious: Yes (Death, Hospitalization, Other)
  Sender: FDA-Public Use
  Company Number: DE-ROCHE-1265993

PATIENT
  Sex: Female
  Weight: 67 kg

DRUGS (4)
  1. AVASTIN [Suspect]
     Indication: ASTROCYTOMA
     Route: 042
     Dates: start: 20100503, end: 20111115
  2. AVASTIN [Suspect]
     Indication: OFF LABEL USE
  3. DEXAMETHASON [Concomitant]
     Indication: BRAIN OEDEMA
     Route: 048
     Dates: start: 20110408
  4. TEMOZOLOMIDE [Concomitant]
     Indication: ASTROCYTOMA
     Route: 048
     Dates: start: 20110831, end: 20111115

REACTIONS (5)
  - Arterial disorder [Unknown]
  - Gangrene [Fatal]
  - Skin disorder [Fatal]
  - Soft tissue injury [Fatal]
  - Fall [Unknown]
